FAERS Safety Report 9159348 (Version 1)
Quarter: 2013Q1

REPORT INFORMATION
  Report Type: Spontaneous
  Country: IN (occurrence: IN)
  Receive Date: 20130313
  Receipt Date: 20130313
  Transmission Date: 20140127
  Serious: Yes (Hospitalization, Other)
  Sender: FDA-Public Use
  Company Number: IN-JNJFOC-20130303445

PATIENT
  Age: 33 Year
  Sex: Male

DRUGS (1)
  1. TRAMADOL HYDROCHLORIDE [Suspect]
     Indication: PAIN
     Route: 065

REACTIONS (3)
  - Euphoric mood [Unknown]
  - Self-medication [Unknown]
  - Drug dependence [Unknown]
